FAERS Safety Report 23936327 (Version 1)
Quarter: 2024Q2

REPORT INFORMATION
  Report Type: Spontaneous
  Country: US (occurrence: US)
  Receive Date: 20240604
  Receipt Date: 20240604
  Transmission Date: 20240715
  Serious: No
  Sender: FDA-Public Use
  Company Number: US-SERB S.A.S.-2157738

PATIENT

DRUGS (1)
  1. VORAXAZE [Suspect]
     Active Substance: GLUCARPIDASE
     Indication: Product used for unknown indication
     Dates: start: 20230605, end: 20230605

REACTIONS (2)
  - Off label use [Unknown]
  - Underdose [Unknown]

NARRATIVE: CASE EVENT DATE: 20230605
